FAERS Safety Report 9693856 (Version 2)
Quarter: 2014Q2

REPORT INFORMATION
  Report Type: Spontaneous
  Country: CH (occurrence: CH)
  Receive Date: 20131118
  Receipt Date: 20140417
  Transmission Date: 20141212
  Serious: Yes (Life-Threatening, Hospitalization)
  Sender: FDA-Public Use
  Company Number: CH-TEVA-442956ISR

PATIENT
  Age: 17 Year
  Sex: Male
  Weight: 88 kg

DRUGS (2)
  1. IRFEN-600 LACTAB [Suspect]
     Indication: ARTHRALGIA
     Dosage: 600 MILLIGRAM DAILY; ONE SINGLE DOSE
     Route: 048
     Dates: start: 20130912, end: 20130912
  2. VENTOLIN 0.1 MG [Concomitant]
     Indication: ASTHMA
     Route: 055

REACTIONS (6)
  - Anaphylactoid reaction [Recovered/Resolved]
  - Dyspnoea [Recovered/Resolved]
  - Rash erythematous [Recovered/Resolved]
  - Swelling [Recovered/Resolved]
  - Hypoacusis [Recovered/Resolved]
  - Hypersensitivity [Recovered/Resolved]
